FAERS Safety Report 7769870-3 (Version None)
Quarter: 2011Q3

REPORT INFORMATION
  Report Type: 
  Country: None (occurrence: None)
  Receive Date: 20110922
  Receipt Date: 20110103
  Transmission Date: 20111222
  Serious: No
  Sender: FDA-Public Use
  Company Number: US-ASTRAZENECA-2011SE00172

PATIENT
  Age: 33 Year
  Sex: Female
  Weight: 97.5 kg

DRUGS (7)
  1. SEROQUEL [Suspect]
     Route: 048
     Dates: start: 20100101, end: 20100101
  2. SEROQUEL [Suspect]
     Indication: BIPOLAR DISORDER
     Route: 048
     Dates: start: 20100101, end: 20100101
  3. SEROQUEL [Suspect]
     Route: 048
     Dates: start: 20100101, end: 20100101
  4. SEROQUEL [Suspect]
     Indication: BIPOLAR I DISORDER
     Route: 048
     Dates: start: 20100101, end: 20100101
  5. SEROQUEL [Suspect]
     Route: 048
     Dates: start: 20100101, end: 20100101
  6. XANAX [Concomitant]
     Indication: NERVOUSNESS
  7. SEROQUEL [Suspect]
     Route: 048
     Dates: start: 20100101, end: 20100101

REACTIONS (4)
  - INSOMNIA [None]
  - DRUG DOSE OMISSION [None]
  - AGITATION [None]
  - LACRIMATION INCREASED [None]
